FAERS Safety Report 8895322 (Version 2)
Quarter: 2013Q1

REPORT INFORMATION
  Report Type: Spontaneous
  Country: US (occurrence: US)
  Receive Date: 20121108
  Receipt Date: 20130205
  Transmission Date: 20140127
  Serious: No
  Sender: FDA-Public Use
  Company Number: US-ASTRAZENECA-2012SE81016

PATIENT
  Age: 41 Year
  Sex: Male
  Weight: 72.6 kg

DRUGS (29)
  1. FLONASE [Concomitant]
     Indication: HYPERSENSITIVITY
  2. VIAGRA [Concomitant]
     Indication: ERECTILE DYSFUNCTION
  3. XALATAN [Concomitant]
     Indication: GLAUCOMA
  4. PATADAY [Concomitant]
     Indication: HYPERSENSITIVITY
  5. SEROQUEL XR [Suspect]
     Indication: BIPOLAR DISORDER
     Route: 048
     Dates: start: 201209, end: 201209
  6. SEROQUEL XR [Suspect]
     Indication: PSYCHOTIC DISORDER
     Route: 048
     Dates: start: 201209, end: 201209
  7. SEROQUEL XR [Suspect]
     Indication: SCHIZOPHRENIA
     Route: 048
     Dates: start: 201209, end: 201209
  8. SEROQUEL XR [Suspect]
     Indication: BIPOLAR DISORDER
     Route: 048
     Dates: start: 201209
  9. SEROQUEL XR [Suspect]
     Indication: PSYCHOTIC DISORDER
     Route: 048
     Dates: start: 201209
  10. SEROQUEL XR [Suspect]
     Indication: SCHIZOPHRENIA
     Route: 048
     Dates: start: 201209
  11. SEROQUEL XR [Suspect]
     Indication: BIPOLAR DISORDER
     Route: 048
     Dates: start: 201211, end: 20130108
  12. SEROQUEL XR [Suspect]
     Indication: PSYCHOTIC DISORDER
     Route: 048
     Dates: start: 201211, end: 20130108
  13. SEROQUEL XR [Suspect]
     Indication: SCHIZOPHRENIA
     Route: 048
     Dates: start: 201211, end: 20130108
  14. SEROQUEL XR [Suspect]
     Indication: BIPOLAR DISORDER
     Route: 048
     Dates: start: 20130108
  15. SEROQUEL XR [Suspect]
     Indication: PSYCHOTIC DISORDER
     Route: 048
     Dates: start: 20130108
  16. SEROQUEL XR [Suspect]
     Indication: SCHIZOPHRENIA
     Route: 048
     Dates: start: 20130108
  17. ACCOLATE [Suspect]
     Indication: SINUSITIS
     Route: 048
     Dates: start: 2011
  18. IMURAN [Concomitant]
     Indication: DERMATITIS ATOPIC
  19. ADVAIR [Concomitant]
     Indication: ASTHMA
  20. XOPENEX [Concomitant]
     Indication: ASTHMA
  21. TOPAMAX [Concomitant]
     Indication: CONVULSION
  22. CLONAZAPAM [Concomitant]
     Indication: CONVULSION
  23. PRISTIQ [Concomitant]
     Indication: DEPRESSION
  24. PROTONIX [Concomitant]
     Indication: GASTROOESOPHAGEAL REFLUX DISEASE
  25. PROTONIX [Concomitant]
     Indication: DRUG TOXICITY PROPHYLAXIS
  26. PROPRANOLOL [Concomitant]
     Indication: ANXIETY
  27. VESICARE [Concomitant]
     Indication: INCONTINENCE
  28. TRAZADONE [Concomitant]
     Indication: SLEEP DISORDER
  29. SINGULAIR [Concomitant]
     Indication: HYPERSENSITIVITY

REACTIONS (7)
  - Disturbance in attention [Recovered/Resolved]
  - Feeling abnormal [Recovered/Resolved]
  - Weight decreased [Unknown]
  - Migraine [Recovered/Resolved]
  - Headache [Recovered/Resolved]
  - Hypersomnia [Recovered/Resolved]
  - Dizziness [Recovered/Resolved]
